FAERS Safety Report 25132153 (Version 1)
Quarter: 2025Q1

REPORT INFORMATION
  Report Type: Spontaneous
  Country: BE (occurrence: BE)
  Receive Date: 20250328
  Receipt Date: 20250328
  Transmission Date: 20250409
  Serious: Yes (Other)
  Sender: AMGEN
  Company Number: BE-AMGEN-BELSP2025056163

PATIENT
  Age: 17 Year
  Sex: Female

DRUGS (2)
  1. WEZLANA [Suspect]
     Active Substance: USTEKINUMAB-AUUB
     Indication: Crohn^s disease
     Dosage: 90 MILLIGRAM, Q8WK
     Route: 065
  2. WEZLANA [Suspect]
     Active Substance: USTEKINUMAB-AUUB
     Dosage: UNK, Q4WK
     Route: 065

REACTIONS (5)
  - Ophthalmic vein thrombosis [Recovered/Resolved]
  - Cavernous sinus thrombosis [Recovered/Resolved]
  - Myositis [Recovered/Resolved]
  - Loss of therapeutic response [Recovered/Resolved]
  - Off label use [Unknown]
